APPROVED DRUG PRODUCT: SERTRALINE HYDROCHLORIDE
Active Ingredient: SERTRALINE HYDROCHLORIDE
Strength: EQ 20MG BASE/ML
Dosage Form/Route: CONCENTRATE;ORAL
Application: A076934 | Product #001 | TE Code: AA
Applicant: STRIDES PHARMA GLOBAL PTE LTD
Approved: Jun 30, 2006 | RLD: No | RS: No | Type: RX